FAERS Safety Report 5035968-6 (Version None)
Quarter: 2006Q2

REPORT INFORMATION
  Report Type: 
  Country: None (occurrence: None)
  Receive Date: 20060526
  Receipt Date: 20060411
  Transmission Date: 20061013
  Serious: No
  Sender: FDA-Public Use
  Company Number: 224024

PATIENT
  Sex: Female

DRUGS (1)
  1. RAPTIVA [Suspect]
     Dates: start: 20060129

REACTIONS (2)
  - BACK PAIN [None]
  - SCIATICA [None]
